FAERS Safety Report 7676802-5 (Version None)
Quarter: 2011Q3

REPORT INFORMATION
  Report Type: 
  Country: None (occurrence: None)
  Receive Date: 20110805
  Receipt Date: 20110721
  Transmission Date: 20111222
  Serious: Yes (Hospitalization, Other)
  Sender: FDA-Public Use
  Company Number: 2011MA009283

PATIENT
  Age: 38 Year
  Sex: Female

DRUGS (2)
  1. PHENYTOIN [Suspect]
     Indication: EPILEPSY
     Dosage: 150 MG;QD;
     Dates: start: 20090705
  2. VALPROATE SODIUM [Concomitant]

REACTIONS (1)
  - STEVENS-JOHNSON SYNDROME [None]
